FAERS Safety Report 11381031 (Version 1)
Quarter: 2015Q3

REPORT INFORMATION
  Report Type: Report from Study
  Country: AR (occurrence: AR)
  Receive Date: 20150814
  Receipt Date: 20150814
  Transmission Date: 20151125
  Serious: Yes (Other)
  Sender: FDA-Public Use
  Company Number: AR-TEVA-586258ISR

PATIENT
  Age: 38 Year
  Sex: Female

DRUGS (5)
  1. LOPINAVIR + RITONAVIR [Suspect]
     Active Substance: LOPINAVIR\RITONAVIR
     Route: 048
     Dates: start: 20140721
  2. RITONAVIR. [Suspect]
     Active Substance: RITONAVIR
     Route: 048
     Dates: start: 20110516, end: 20140721
  3. ATAZANAVIR SULFATE [Suspect]
     Active Substance: ATAZANAVIR SULFATE
     Route: 048
     Dates: start: 20110516, end: 20140721
  4. LAMIVUDINE AND ZIDOVUDINE [Suspect]
     Active Substance: LAMIVUDINE\ZIDOVUDINE
     Indication: HIV INFECTION
     Route: 048
     Dates: start: 20140721
  5. SELZENTRY [Suspect]
     Active Substance: MARAVIROC
     Dosage: 300 MILLIGRAM DAILY;
     Dates: start: 20130425, end: 20140721

REACTIONS (2)
  - Exposure during pregnancy [None]
  - Abortion spontaneous [Unknown]
